FAERS Safety Report 23637968 (Version 2)
Quarter: 2024Q1

REPORT INFORMATION
  Report Type: Spontaneous
  Country: FR (occurrence: FR)
  Receive Date: 20240315
  Receipt Date: 20240325
  Transmission Date: 20240410
  Serious: Yes (Life-Threatening, Hospitalization, Other)
  Sender: FDA-Public Use
  Company Number: FR-PFIZER INC-PV202400027307

PATIENT
  Age: 17 Month
  Sex: Female

DRUGS (28)
  1. OXCARBAZEPINE [Suspect]
     Active Substance: OXCARBAZEPINE
     Indication: Dystonia
     Dosage: UNK
     Route: 065
     Dates: start: 201504
  2. OXCARBAZEPINE [Suspect]
     Active Substance: OXCARBAZEPINE
     Indication: Tongue biting
  3. OXCARBAZEPINE [Suspect]
     Active Substance: OXCARBAZEPINE
     Indication: Sedative therapy
  4. OXCARBAZEPINE [Suspect]
     Active Substance: OXCARBAZEPINE
     Indication: Analgesic therapy
  5. HYDROXYZINE [Suspect]
     Active Substance: HYDROXYZINE HYDROCHLORIDE
     Indication: Dystonia
     Dosage: UNK
     Route: 065
     Dates: start: 20150414
  6. HYDROXYZINE [Suspect]
     Active Substance: HYDROXYZINE HYDROCHLORIDE
     Indication: Tongue biting
  7. ACETAMINOPHEN [Suspect]
     Active Substance: ACETAMINOPHEN
     Indication: Tongue biting
     Dosage: UNK
     Route: 065
     Dates: start: 20150412
  8. ACETAMINOPHEN [Suspect]
     Active Substance: ACETAMINOPHEN
     Indication: Dystonia
  9. ARTANE [Suspect]
     Active Substance: TRIHEXYPHENIDYL HYDROCHLORIDE
     Indication: Tongue biting
     Dosage: UNK
     Route: 065
     Dates: start: 201504
  10. ARTANE [Suspect]
     Active Substance: TRIHEXYPHENIDYL HYDROCHLORIDE
     Indication: Dystonia
  11. CLONAZEPAM [Suspect]
     Active Substance: CLONAZEPAM
     Indication: Dystonia
     Dosage: 0.05 MILLIGRAM, QD
     Route: 065
     Dates: start: 201504
  12. CLONAZEPAM [Suspect]
     Active Substance: CLONAZEPAM
     Indication: Tongue biting
     Dosage: 0.1 MILLIGRAM, QD
     Route: 065
     Dates: start: 201504
  13. CLONAZEPAM [Suspect]
     Active Substance: CLONAZEPAM
     Indication: Sedative therapy
  14. CLONAZEPAM [Suspect]
     Active Substance: CLONAZEPAM
     Indication: Analgesic therapy
  15. FOSPHENYTOIN SODIUM [Suspect]
     Active Substance: FOSPHENYTOIN SODIUM
     Indication: Dystonia
     Dosage: 15 MILLIGRAM/KILOGRAM
     Route: 065
     Dates: start: 20150413
  16. FOSPHENYTOIN SODIUM [Suspect]
     Active Substance: FOSPHENYTOIN SODIUM
     Indication: Tongue biting
  17. MORPHINE [Suspect]
     Active Substance: MORPHINE
     Indication: Dystonia
     Dosage: UNK
     Route: 065
     Dates: start: 20150412
  18. MORPHINE [Suspect]
     Active Substance: MORPHINE
     Indication: Tongue biting
  19. DIAZEPAM [Suspect]
     Active Substance: DIAZEPAM
     Indication: Dystonia
     Dosage: 0.5 MILLIGRAM/KILOGRAM
     Route: 065
     Dates: start: 20150413
  20. DIAZEPAM [Suspect]
     Active Substance: DIAZEPAM
     Indication: Tongue biting
  21. SUFENTANIL [Concomitant]
     Active Substance: SUFENTANIL
     Indication: Sedative therapy
     Dosage: UNK
     Route: 065
     Dates: start: 201504
  22. MIDAZOLAM [Concomitant]
     Active Substance: MIDAZOLAM
     Indication: Sedative therapy
     Dosage: UNK
     Route: 065
     Dates: start: 201504
  23. AMOXICILLIN\CLAVULANIC ACID [Concomitant]
     Active Substance: AMOXICILLIN\CLAVULANIC ACID
     Indication: Encephalitis
     Dosage: UNK
     Route: 065
     Dates: start: 20150413
  24. XENAZINE [Concomitant]
     Active Substance: TETRABENAZINE
     Indication: Tongue biting
     Dosage: UNK
     Route: 065
     Dates: start: 20150430
  25. XENAZINE [Concomitant]
     Active Substance: TETRABENAZINE
     Indication: Dystonia
     Dosage: 5.8 MILLIGRAM/KILOGRAM, QD, LESS THAN OR EQUAL TO 5.8 MG/KG PER DAY
     Route: 065
  26. ACYCLOVIR [Concomitant]
     Active Substance: ACYCLOVIR
     Indication: Encephalitis
     Dosage: UNK
     Route: 065
     Dates: start: 20150413
  27. LEVODOPA [Concomitant]
     Active Substance: LEVODOPA
     Indication: Dystonia
     Dosage: 3 MILLIGRAM/KILOGRAM, QD, LESS THAN OR EQUAL TO 3 MG/KG, DAILY
     Route: 065
     Dates: start: 20150430
  28. LEVODOPA [Concomitant]
     Active Substance: LEVODOPA
     Indication: Tongue biting

REACTIONS (2)
  - Drug ineffective [Recovering/Resolving]
  - Off label use [Unknown]
